FAERS Safety Report 5490881-5 (Version None)
Quarter: 2007Q4

REPORT INFORMATION
  Report Type: 
  Country: None (occurrence: None)
  Receive Date: 20071019
  Receipt Date: 20071008
  Transmission Date: 20080405
  Serious: Yes (Other)
  Sender: FDA-Public Use
  Company Number: TW-AVENTIS-200715059GDDC

PATIENT
  Age: 60 Year
  Sex: Female

DRUGS (8)
  1. METHOTREXATE [Suspect]
     Indication: B-CELL LYMPHOMA
     Dosage: DOSE: 12 MG
     Route: 037
     Dates: start: 19930924, end: 19940217
  2. METHOTREXATE [Suspect]
     Dosage: DOSE: 1 G/M2 SYTEMICALLY
     Dates: start: 19931016, end: 19931016
  3. HYDROCORTISONE [Suspect]
     Indication: B-CELL LYMPHOMA
     Route: 037
     Dates: start: 19930924, end: 19940217
  4. CYTARABINE [Concomitant]
     Indication: B-CELL LYMPHOMA
     Dosage: DOSE: 30 MG
     Dates: start: 19930924, end: 19940217
  5. CYTARABINE [Concomitant]
     Dosage: DOSE: 6 G/M2
     Dates: start: 19931016, end: 19931016
  6. RITUXIMAB [Concomitant]
     Indication: B-CELL LYMPHOMA
     Dosage: DOSE: INTRATHECAL AND SYSTEMIC
     Dates: start: 19931022, end: 19931129
  7. RITUXIMAB [Concomitant]
     Dosage: DOSE: INTRATHECAL
     Dates: start: 19940103, end: 19940120
  8. RADIATION THERAPY [Concomitant]
     Dosage: DOSE: 4000CGY (PERFORMED IN 20 FRACTIONS)

REACTIONS (13)
  - DISSEMINATED INTRAVASCULAR COAGULATION [None]
  - ESCHERICHIA INFECTION [None]
  - HYPOAESTHESIA [None]
  - MUSCULAR WEAKNESS [None]
  - MYELOPATHY [None]
  - NOSOCOMIAL INFECTION [None]
  - ORAL CANDIDIASIS [None]
  - PANCYTOPENIA [None]
  - SENSORY DISTURBANCE [None]
  - SEPSIS [None]
  - SPINAL CORD DISORDER [None]
  - STAPHYLOCOCCAL INFECTION [None]
  - URINARY INCONTINENCE [None]
